FAERS Safety Report 10186427 (Version 1)
Quarter: 2014Q2

REPORT INFORMATION
  Report Type: Spontaneous
  Country: US (occurrence: US)
  Receive Date: 20140521
  Receipt Date: 20140521
  Transmission Date: 20141212
  Serious: No
  Sender: FDA-Public Use
  Company Number: US-ASTRAZENECA-2013SE48172

PATIENT
  Age: 6 Year
  Sex: 0

DRUGS (3)
  1. BUDESONIDE RESPULES [Suspect]
     Indication: ASTHMA
     Dosage: BID
     Route: 055
  2. SINGULAIR [Concomitant]
  3. ZYRTEC [Concomitant]

REACTIONS (1)
  - Onychoclasis [Unknown]
